FAERS Safety Report 9628006 (Version 1)
Quarter: 2013Q4

REPORT INFORMATION
  Report Type: Spontaneous
  Country: ES (occurrence: ES)
  Receive Date: 20131016
  Receipt Date: 20131016
  Transmission Date: 20140711
  Serious: Yes (Hospitalization)
  Sender: FDA-Public Use
  Company Number: ES-B.I. PHARMACEUTICALS,INC./RIDGEFIELD-2013-BI-32335ES

PATIENT
  Age: 82 Year
  Sex: Female

DRUGS (6)
  1. PRADAXA [Suspect]
     Indication: ATRIAL FIBRILLATION
     Dosage: 200 MG
     Route: 048
     Dates: start: 20130415, end: 20130925
  2. SIMVASTATINA [Concomitant]
  3. OMEPRAZOL [Concomitant]
  4. ALPRAZOLAM [Concomitant]
  5. LINCIL [Concomitant]
  6. VESICARE [Concomitant]

REACTIONS (1)
  - Microcytic anaemia [Not Recovered/Not Resolved]
